FAERS Safety Report 8168554-X (Version None)
Quarter: 2012Q1

REPORT INFORMATION
  Report Type: 
  Country: None (occurrence: None)
  Receive Date: 20120227
  Receipt Date: 20120227
  Transmission Date: 20120608
  Serious: Yes (Other)
  Sender: FDA-Public Use
  Company Number: None

PATIENT
  Age: 33 Year
  Sex: Male
  Weight: 90.718 kg

DRUGS (1)
  1. LINDANE [Suspect]
     Indication: ACARODERMATITIS
     Dosage: 2OZ
     Route: 061
     Dates: start: 20111031, end: 20111107

REACTIONS (1)
  - ALOPECIA [None]
